FAERS Safety Report 7656890-2 (Version None)
Quarter: 2011Q3

REPORT INFORMATION
  Report Type: 
  Country: None (occurrence: None)
  Receive Date: 20110802
  Receipt Date: 20110719
  Transmission Date: 20111222
  Serious: Yes (Death, Hospitalization, Other)
  Sender: FDA-Public Use
  Company Number: 1000021688

PATIENT
  Age: 76 Year
  Sex: Male

DRUGS (10)
  1. LANTUS [Concomitant]
  2. SEGURIL (FUROSEMIDE) [Concomitant]
  3. VALSARTAN [Concomitant]
  4. ROFLUMILAST (ROFLUMILAST) (500 MICROGRAM, TABLETS) [Suspect]
     Indication: CHRONIC OBSTRUCTIVE PULMONARY DISEASE
     Dosage: 500 MCG (500 MCG, 1 IN 1 D), ORAL
     Route: 048
     Dates: start: 20110201
  5. SPIRIVA [Concomitant]
  6. CLOPIDOGREL [Concomitant]
  7. SERETIDE (FLUTICASONE, SALMETEROL) [Concomitant]
  8. OXYGEN [Concomitant]
  9. PANTOPRAZOLE [Concomitant]
  10. ALDACTONE [Concomitant]

REACTIONS (11)
  - INFLUENZA [None]
  - MULTI-ORGAN FAILURE [None]
  - VIRAL INFECTION [None]
  - ENCEPHALOPATHY [None]
  - EYE SWELLING [None]
  - BLOOD GLUCOSE INCREASED [None]
  - CHRONIC OBSTRUCTIVE PULMONARY DISEASE [None]
  - DISCOMFORT [None]
  - CARDIOPULMONARY FAILURE [None]
  - RESPIRATORY FAILURE [None]
  - BACTERIAL INFECTION [None]
